FAERS Safety Report 8934515 (Version 1)
Quarter: 2012Q4

REPORT INFORMATION
  Report Type: 
  Country: US (occurrence: US)
  Receive Date: 20121129
  Receipt Date: 20121129
  Transmission Date: 20130627
  Serious: No
  Sender: FDA-Public Use
  Company Number: US-GLAXOSMITHKLINE-A0967379A

PATIENT
  Age: 79 Year
  Sex: Male

DRUGS (9)
  1. FLOVENT [Suspect]
     Indication: ASTHMA
     Dosage: 1PUFF Twice per day
     Route: 055
     Dates: start: 2010
  2. AMLODIPINE + OLMESARTAN [Concomitant]
  3. SYNTHROID [Concomitant]
  4. LIVALO [Concomitant]
  5. OMEPRAZOLE [Concomitant]
  6. MIRALAX [Concomitant]
  7. ICAPS [Concomitant]
  8. CHONDROITIN [Concomitant]
  9. COQ10 [Concomitant]

REACTIONS (2)
  - Dyspnoea [Recovering/Resolving]
  - Asthenia [Recovering/Resolving]
